FAERS Safety Report 4634632-2 (Version None)
Quarter: 2005Q2

REPORT INFORMATION
  Report Type: 
  Country: None (occurrence: None)
  Receive Date: 20050411
  Receipt Date: 20050325
  Transmission Date: 20051028
  Serious: Yes (Hospitalization, Disabling)
  Sender: FDA-Public Use
  Company Number: CERZ-10838

PATIENT
  Age: 48 Year
  Sex: Male
  Weight: 54 kg

DRUGS (1)
  1. CEREZYME [Suspect]
     Indication: GAUCHER'S DISEASE
     Dosage: 60 U/KG Q2WKS IV
     Route: 042
     Dates: start: 19990527

REACTIONS (9)
  - ASTHENIA [None]
  - DISCOMFORT [None]
  - DYSARTHRIA [None]
  - DYSPHONIA [None]
  - EYE MOVEMENT DISORDER [None]
  - HALLUCINATION [None]
  - MENTAL IMPAIRMENT [None]
  - ORTHOSTATIC HYPOTENSION [None]
  - PARKINSON'S DISEASE [None]
